FAERS Safety Report 6686053-9 (Version None)
Quarter: 2010Q2

REPORT INFORMATION
  Report Type: 
  Country: None (occurrence: None)
  Receive Date: 20100419
  Receipt Date: 20100413
  Transmission Date: 20101027
  Serious: Yes (Other)
  Sender: FDA-Public Use
  Company Number: FR-SANOFI-AVENTIS-2010SA020797

PATIENT
  Age: 64 Year
  Sex: Female

DRUGS (1)
  1. ARAVA [Suspect]
     Indication: DRUG USE FOR UNKNOWN INDICATION
     Route: 048
     Dates: start: 20081001, end: 20091101

REACTIONS (2)
  - ACNE [None]
  - BASAL CELL CARCINOMA [None]
